FAERS Safety Report 10196205 (Version 1)
Quarter: 2014Q2

REPORT INFORMATION
  Report Type: Spontaneous
  Country: US (occurrence: US)
  Receive Date: 20140527
  Receipt Date: 20140527
  Transmission Date: 20141212
  Serious: Yes (Other)
  Sender: FDA-Public Use
  Company Number: US-BAYER-2014-073700

PATIENT
  Age: 43 Year
  Sex: Female

DRUGS (4)
  1. AVELOX [Suspect]
     Indication: STAPHYLOCOCCAL INFECTION
     Dosage: 400 MG, QD FOR 10 DAYS
     Route: 048
     Dates: start: 20110523, end: 20110530
  2. TOPOMAX [Concomitant]
  3. NORCO [Concomitant]
  4. FENTANYL [Concomitant]

REACTIONS (4)
  - Stevens-Johnson syndrome [Not Recovered/Not Resolved]
  - Urticaria [Not Recovered/Not Resolved]
  - Blister [Not Recovered/Not Resolved]
  - Neuropathy peripheral [Not Recovered/Not Resolved]
